FAERS Safety Report 17598099 (Version 1)
Quarter: 2020Q1

REPORT INFORMATION
  Report Type: Spontaneous
  Country: US (occurrence: US)
  Receive Date: 20200327
  Receipt Date: 20200327
  Transmission Date: 20200409
  Serious: Yes (Hospitalization)
  Sender: FDA-Public Use
  Company Number: None

PATIENT
  Age: 73 Year
  Sex: Female
  Weight: 70.1 kg

DRUGS (4)
  1. HYDROXYZINE 25 MG BY MOUTH EVERY 6 HOURS AS NEEDED FOR ITCHING [Concomitant]
     Dates: start: 20191205
  2. CLOBETASOL 0.05% OINTMENT [Concomitant]
     Active Substance: CLOBETASOL
     Dates: start: 20191205
  3. LINAGLIPITIN [Suspect]
     Active Substance: LINAGLIPTIN
     Indication: TYPE 2 DIABETES MELLITUS
     Route: 048
     Dates: start: 20190213, end: 20191205
  4. PREDNISONE 40 MG BY MOUTH DAILY [Concomitant]
     Dates: start: 20191205

REACTIONS (6)
  - Cellulitis [None]
  - Blister [None]
  - Acarodermatitis [None]
  - Flea infestation [None]
  - Bed bug infestation [None]
  - Pemphigoid [None]

NARRATIVE: CASE EVENT DATE: 20191205
